FAERS Safety Report 16059004 (Version 2)
Quarter: 2019Q2

REPORT INFORMATION
  Report Type: Spontaneous
  Country: US (occurrence: US)
  Receive Date: 20190311
  Receipt Date: 20190507
  Transmission Date: 20190711
  Serious: No
  Sender: FDA-Public Use
  Company Number: US-MERZ NORTH AMERICA, INC.-19MRZ-00099

PATIENT
  Age: 73 Year
  Sex: Female
  Weight: 84.8 kg

DRUGS (7)
  1. HYDROCHLOROTHIAZIDE. [Concomitant]
     Active Substance: HYDROCHLOROTHIAZIDE
  2. GABAPENTIN. [Concomitant]
     Active Substance: GABAPENTIN
  3. XEOMIN [Suspect]
     Active Substance: INCOBOTULINUMTOXINA
     Indication: BLEPHAROSPASM
     Dosage: 2.5 IU  AT TWO SITES IN LEFT UPPER EYELID
     Dates: start: 20190205, end: 20190205
  4. FLUTICASONE. [Concomitant]
     Active Substance: FLUTICASONE
  5. ATORVASTATIN [Concomitant]
     Active Substance: ATORVASTATIN
  6. EXEMESTANE. [Concomitant]
     Active Substance: EXEMESTANE
  7. RANITIDINE. [Concomitant]
     Active Substance: RANITIDINE

REACTIONS (7)
  - Vision blurred [Unknown]
  - Eyelid pain [Unknown]
  - Eyelid ptosis [Unknown]
  - Torticollis [Unknown]
  - Tremor [Unknown]
  - Eyelids pruritus [Unknown]
  - Eyelid irritation [Unknown]

NARRATIVE: CASE EVENT DATE: 201902
